FAERS Safety Report 23462310 (Version 1)
Quarter: 2024Q1

REPORT INFORMATION
  Report Type: Spontaneous
  Country: US (occurrence: US)
  Receive Date: 20240131
  Receipt Date: 20240131
  Transmission Date: 20240409
  Serious: Yes (Hospitalization)
  Sender: FDA-Public Use
  Company Number: US-TEVA-VS-3149429

PATIENT
  Age: 3 Decade
  Sex: Male

DRUGS (3)
  1. LORAZEPAM [Suspect]
     Active Substance: LORAZEPAM
     Indication: Catatonia
     Dosage: INITIAL UNSPECIFIED DOSE WITH SUBSEQUENT TAPERING
     Route: 065
  2. BUPROPION [Concomitant]
     Active Substance: BUPROPION
     Indication: Catatonia
     Route: 065
  3. OLANZAPINE [Suspect]
     Active Substance: OLANZAPINE
     Indication: Catatonia
     Dosage: STARTED AT UNSPECIFIED DOSE AND TITRATED
     Route: 065

REACTIONS (3)
  - Catatonia [Recovering/Resolving]
  - Rebound effect [Recovering/Resolving]
  - Drug ineffective [Unknown]
